FAERS Safety Report 9925448 (Version 2)
Quarter: 2014Q2

REPORT INFORMATION
  Report Type: Report from Study
  Country: US (occurrence: KR)
  Receive Date: 20140226
  Receipt Date: 20140507
  Transmission Date: 20141212
  Serious: Yes (Hospitalization)
  Sender: FDA-Public Use
  Company Number: KR-FRI-1000054584

PATIENT
  Age: 66 Year
  Sex: Male
  Weight: 74 kg

DRUGS (11)
  1. ROFLUMILAST [Suspect]
     Indication: CHRONIC OBSTRUCTIVE PULMONARY DISEASE
     Dosage: 500 MCG
     Route: 048
     Dates: start: 20130722
  2. SPIRIVA [Concomitant]
     Dates: start: 20111021
  3. SERETIDE [Concomitant]
     Dates: start: 20111021
  4. ASIMA TAB [Concomitant]
     Dates: start: 20120901
  5. LUKAIR TAB [Concomitant]
     Dates: start: 20130219
  6. GLUPA TAB [Concomitant]
     Dates: start: 20120831
  7. VYTORIN TAB [Concomitant]
     Dates: start: 20120525
  8. ONGLYZA TAB [Concomitant]
     Dates: start: 20121207
  9. EXFORGE TAB [Concomitant]
     Dates: start: 20120525
  10. VALPROATE [Concomitant]
     Dates: start: 20111021
  11. CLONAZEPAM [Concomitant]
     Dates: start: 20111021

REACTIONS (1)
  - Incisional hernia [Recovered/Resolved]
